FAERS Safety Report 10151889 (Version 2)
Quarter: 2014Q2

REPORT INFORMATION
  Report Type: Spontaneous
  Country: US (occurrence: None)
  Receive Date: 20140501
  Receipt Date: 20140616
  Transmission Date: 20141212
  Serious: Yes (Hospitalization)
  Sender: FDA-Public Use
  Company Number: ACET20140009

PATIENT
  Age: 19 Year
  Sex: Female

DRUGS (1)
  1. Q-PAP (PARACETAMOL) [Suspect]
     Indication: DYSMENORRHOEA
     Dosage: 78-120 G, FIVE TABS AN HOUR FOR 2 DAYS, ORAL
     Route: 048

REACTIONS (12)
  - Pancreatic pseudocyst [None]
  - Overdose [None]
  - Nausea [None]
  - Vomiting [None]
  - Headache [None]
  - Blood pressure increased [None]
  - Aspartate aminotransferase increased [None]
  - Alanine aminotransferase increased [None]
  - Blood lactate dehydrogenase increased [None]
  - Blood bilirubin increased [None]
  - Bilirubin conjugated increased [None]
  - Pancreatitis acute [None]
